FAERS Safety Report 16098076 (Version 5)
Quarter: 2020Q1

REPORT INFORMATION
  Report Type: Other
  Country: AT (occurrence: AT)
  Receive Date: 20190320
  Receipt Date: 20200313
  Transmission Date: 20200409
  Serious: Yes (Hospitalization)
  Sender: FDA-Public Use
  Company Number: AT-CELLTRION INC.-2018AT022920

PATIENT

DRUGS (65)
  1. TRASTUZUMAB (UNKNOWN) [Suspect]
     Active Substance: TRASTUZUMAB
     Indication: HER-2 POSITIVE BREAST CANCER
     Dosage: 384 MG, EVERY 3 WEEKS (MOST RECENT DOSE PRIOR TO THE EVENT: 19/AUG/2019)
     Route: 042
     Dates: start: 20180810, end: 20180810
  2. PERTUZUMAB. [Suspect]
     Active Substance: PERTUZUMAB
     Dosage: 840 MG, EVERY 3 WEEKS (DOSAGE TEXT: MOST RECENT DOSE PRIOR TO THE EVENT: 31/AUG/2018)
     Route: 042
     Dates: start: 20180810
  3. VITAMINS WITH MINERALS [Concomitant]
     Active Substance: MINERALS\VITAMINS
     Dosage: UNK
     Route: 065
     Dates: start: 20180817, end: 20190615
  4. HUMANALBUMIN [Concomitant]
     Active Substance: ALBUMIN HUMAN
     Indication: ASCITES
     Dosage: UNK
     Route: 065
     Dates: start: 20191108, end: 20191110
  5. AVELOX [Concomitant]
     Active Substance: MOXIFLOXACIN HYDROCHLORIDE
     Indication: OSTEONECROSIS OF JAW
     Dosage: UNK
     Route: 065
     Dates: start: 20190919, end: 20191101
  6. ZOFRAN [Concomitant]
     Active Substance: ONDANSETRON HYDROCHLORIDE
     Dosage: ONGOING = NOT CHECKED
     Route: 065
     Dates: start: 20180907, end: 20180914
  7. PASPERTIN [METOCLOPRAMIDE HYDROCHLORIDE] [Concomitant]
     Active Substance: METOCLOPRAMIDE HYDROCHLORIDE
     Indication: NAUSEA
     Dosage: UNK
     Route: 065
     Dates: start: 20180801, end: 20180807
  8. PASPERTIN [METOCLOPRAMIDE HYDROCHLORIDE] [Concomitant]
     Active Substance: METOCLOPRAMIDE HYDROCHLORIDE
     Dosage: ONGOING = NOT CHECKED
     Route: 065
     Dates: start: 20180831, end: 20180907
  9. PARKEMED [Concomitant]
     Active Substance: MEFENAMIC ACID
     Indication: ARTHRALGIA
     Dosage: UNK
     Route: 065
     Dates: start: 20180914
  10. MOLAXOLE [Concomitant]
     Active Substance: POLYETHYLENE GLYCOL 3350\POTASSIUM CHLORIDE\SODIUM BICARBONATE\SODIUM CHLORIDE
     Indication: CONSTIPATION
     Dosage: ONGOING = NOT CHECKED
     Route: 065
     Dates: start: 20180831, end: 20180915
  11. LASILACTON [Concomitant]
     Active Substance: FUROSEMIDE\SPIRONOLACTONE
     Indication: OEDEMA PERIPHERAL
     Dosage: ONGOING = CHECKED
     Route: 065
     Dates: start: 20191109
  12. CLAVERSAL [Concomitant]
     Active Substance: MESALAMINE
     Dosage: ONGOING = CHECKED
     Route: 065
  13. FEMARA [Suspect]
     Active Substance: LETROZOLE
     Indication: HER-2 POSITIVE BREAST CANCER
     Dosage: 2.5 MG, PER DAY
     Route: 048
     Dates: start: 20181029, end: 20190613
  14. ULSAL [Concomitant]
     Active Substance: RANITIDINE HYDROCHLORIDE
     Dosage: UNK
     Route: 065
     Dates: start: 20180810, end: 20180914
  15. MYCOSTATIN [Concomitant]
     Active Substance: NYSTATIN
     Dosage: UNK
     Route: 065
     Dates: start: 20191104, end: 20191110
  16. AVELOX [Concomitant]
     Active Substance: MOXIFLOXACIN HYDROCHLORIDE
     Dosage: UNK
     Route: 065
     Dates: start: 20190808, end: 20190827
  17. DEXABENE [Concomitant]
     Dosage: UNK
     Route: 065
     Dates: start: 20180810, end: 20180914
  18. TRITTICO [Concomitant]
     Active Substance: TRAZODONE HYDROCHLORIDE
     Dosage: DRUG REPORTED AS TRITTICO RET.
     Route: 065
  19. FORTECORTIN [DEXAMETHASONE] [Concomitant]
     Active Substance: DEXAMETHASONE
     Dosage: UNK
     Route: 065
     Dates: start: 20191115
  20. ENTEROBENE [Concomitant]
     Dosage: UNK
     Route: 065
     Dates: start: 20181127
  21. OLEOVIT [DEXPANTHENOL;RETINOL] [Concomitant]
     Dosage: UNK
     Route: 065
     Dates: start: 20180831, end: 20190615
  22. NOLVADEX [Suspect]
     Active Substance: TAMOXIFEN CITRATE
     Indication: HER-2 POSITIVE BREAST CANCER
     Dosage: OTHER
     Route: 048
     Dates: start: 20190819
  23. ABRAXANE [Suspect]
     Active Substance: PACLITAXEL
     Dosage: 142.11 MG, 1 WEEK
     Route: 042
     Dates: start: 20181019
  24. AMLODIBENE [Concomitant]
     Active Substance: AMLODIPINE BESYLATE
     Indication: HYPERTENSION
     Dosage: ONGOING = CHECKED
     Route: 065
     Dates: start: 20180810
  25. LASIX [Concomitant]
     Active Substance: FUROSEMIDE
     Indication: OEDEMA PERIPHERAL
     Dosage: ONGOING = CHECKED
     Route: 065
     Dates: start: 20191106
  26. CAPHOSOL [CALCIUM CHLORIDE;SODIUM CHLORIDE;SODIUM PHOSPHATE DIBASIC;SO [Concomitant]
     Dosage: UNK
     Route: 065
     Dates: start: 20180615, end: 20180921
  27. LANSOBENE [Concomitant]
     Dosage: ONGOING = CHECKED
     Route: 065
     Dates: start: 20191104
  28. HYDROGEN [Concomitant]
     Active Substance: HYDROGEN
     Indication: OSTEONECROSIS OF JAW
     Dosage: UNK
     Route: 065
     Dates: start: 20190820, end: 20190820
  29. TRASTUZUMAB (UNKNOWN) [Suspect]
     Active Substance: TRASTUZUMAB
     Indication: BREAST CANCER
     Dosage: 288 MG, EVERY 3 WEEKS
     Route: 042
     Dates: start: 20180831, end: 20180831
  30. ABRAXANE [Suspect]
     Active Substance: PACLITAXEL
     Dosage: MOST RECENT DOSE PRIOR TO THE EVENT: 19/OCT/2018
     Route: 042
     Dates: start: 20181005
  31. KYTRIL [Concomitant]
     Active Substance: GRANISETRON HYDROCHLORIDE
     Dosage: UNK
     Route: 065
     Dates: start: 20180928, end: 20181019
  32. AVELOX [Concomitant]
     Active Substance: MOXIFLOXACIN HYDROCHLORIDE
     Dosage: UNK
     Route: 065
     Dates: start: 20190802, end: 20190808
  33. NOVALGIN (METAMIZOLE SODIUM) [Concomitant]
     Active Substance: METAMIZOLE SODIUM
     Indication: OSTEONECROSIS OF JAW
     Dosage: UNK
     Route: 065
     Dates: start: 20181126, end: 20191103
  34. ZOFRAN [Concomitant]
     Active Substance: ONDANSETRON HYDROCHLORIDE
     Indication: NAUSEA
     Dosage: ONGOING = NOT CHECKED
     Route: 065
     Dates: start: 20180817, end: 20180907
  35. KONAKION [Concomitant]
     Active Substance: PHYTONADIONE
     Dosage: UNK
     Route: 065
     Dates: start: 20191115
  36. SERACTIL [Concomitant]
     Active Substance: DEXIBUPROFEN
     Indication: OSTEONECROSIS OF JAW
     Dosage: UNK
     Route: 065
     Dates: start: 20190725, end: 20191015
  37. CALCIDURAN [Concomitant]
     Active Substance: ASCORBIC ACID\CALCIUM PHOSPHATE\CHOLECALCIFEROL\CITRIC ACID MONOHYDRATE
     Indication: GASTROENTERITIS RADIATION
     Dosage: UNK
     Route: 065
     Dates: start: 20181117, end: 20181118
  38. TRASTUZUMAB EMTANSINE [Suspect]
     Active Substance: ADO-TRASTUZUMAB EMTANSINE
     Indication: BREAST CANCER
     Dosage: 154 MG EVERY 3 WEEKS
     Route: 042
     Dates: start: 20190704, end: 20190704
  39. GUTTALAX [SODIUM PICOSULFATE] [Concomitant]
     Dosage: UNK
     Dates: start: 20191115
  40. CAPHOSOL [CALCIUM CHLORIDE;SODIUM CHLORIDE;SODIUM PHOSPHATE DIBASIC;SO [Concomitant]
     Indication: MUCOSAL INFLAMMATION
     Dosage: UNK
     Route: 065
     Dates: start: 20180921
  41. ENTEROBENE [Concomitant]
     Indication: DIARRHOEA
     Dosage: UNK
     Dates: start: 20181012, end: 20181117
  42. CIPROXIN [CIPROFLOXACIN] [Concomitant]
     Indication: GASTROENTERITIS RADIATION
     Dosage: ONGOING = NOT CHECKED
     Route: 065
     Dates: start: 20181118
  43. ANTIFLAT [Concomitant]
     Dosage: UNK
     Route: 065
     Dates: start: 20181126
  44. LOVENOX [Concomitant]
     Active Substance: ENOXAPARIN SODIUM
     Dosage: ONGOING = CHECKED
     Route: 065
     Dates: start: 20191104, end: 20191113
  45. NOVALGIN (METAMIZOLE SODIUM) [Concomitant]
     Active Substance: METAMIZOLE SODIUM
     Dosage: UNK
     Route: 065
     Dates: start: 20191104
  46. BUSCOPAN [Concomitant]
     Active Substance: BUTYLSCOPOLAMINE BROMIDE
     Dosage: ONGOING = NOT CHECKED
     Route: 065
     Dates: start: 20191104, end: 20191111
  47. TEMESTA [LORAZEPAM] [Concomitant]
     Active Substance: LORAZEPAM
     Dosage: ONGOING = CHECKED
     Route: 065
  48. PARKEMED [Concomitant]
     Active Substance: MEFENAMIC ACID
     Dosage: UNK
     Route: 065
     Dates: start: 20190615
  49. XGEVA [Concomitant]
     Active Substance: DENOSUMAB
     Dosage: ONGOING = CHECKED
     Route: 065
     Dates: start: 20180817
  50. CHLORHEXIDIN [CHLORHEXIDINE] [Concomitant]
     Indication: OSTEONECROSIS OF JAW
     Dosage: UNK
     Route: 065
     Dates: start: 20190820, end: 20190820
  51. TRASTUZUMAB (UNKNOWN) [Suspect]
     Active Substance: TRASTUZUMAB
     Dosage: 384 UNK
     Route: 042
     Dates: start: 20181109, end: 20181109
  52. PERTUZUMAB. [Suspect]
     Active Substance: PERTUZUMAB
     Dosage: 420 MG EVERY 3 WEEKS
     Route: 042
     Dates: start: 20180831
  53. KYTRIL [Concomitant]
     Active Substance: GRANISETRON HYDROCHLORIDE
     Dosage: UNK
     Route: 065
     Dates: start: 20180810, end: 20180914
  54. DUROGESIC [Concomitant]
     Active Substance: FENTANYL
     Indication: OSTEONECROSIS OF JAW
     Dosage: ONGOING = CHECKED
     Route: 065
     Dates: start: 20191105
  55. ENTEROBENE [Concomitant]
     Dosage: UNK
     Route: 065
     Dates: start: 20181012, end: 20181116
  56. PANTOLOC [PANTOPRAZOLE] [Concomitant]
     Active Substance: PANTOPRAZOLE SODIUM
     Indication: ABDOMINAL PAIN UPPER
     Dosage: UNK
     Route: 065
     Dates: start: 20181109, end: 20191101
  57. PARKEMED [Concomitant]
     Active Substance: MEFENAMIC ACID
     Dosage: UNK
     Route: 065
     Dates: start: 20181019
  58. DONTISOLON [Concomitant]
     Indication: OSTEONECROSIS OF JAW
     Dosage: UNK
     Route: 065
     Dates: start: 20190820, end: 20190820
  59. FULVESTRANT. [Suspect]
     Active Substance: FULVESTRANT
     Indication: BREAST CANCER
     Dosage: 500 MG EVERY 4 WEEKS
     Route: 030
     Dates: start: 20190919, end: 20191112
  60. PERTUZUMAB. [Suspect]
     Active Substance: PERTUZUMAB
     Indication: HER-2 POSITIVE BREAST CANCER
     Dosage: 840 MG, EVERY 3 WEEKS (DOSAGE TEXT: MOST RECENT DOSE PRIOR TO THE EVENT: 31/AUG/2018)
     Route: 042
     Dates: start: 20180810, end: 20180810
  61. ABRAXANE [Suspect]
     Active Substance: PACLITAXEL
     Indication: HER-2 POSITIVE BREAST CANCER
     Dosage: 142.11 MG EVERY WEEK (MOST RECENT DOSE PRIOR TO THE EVENT: 19/OCT/2018)
     Route: 042
     Dates: start: 20180928, end: 20181005
  62. MYCOSTATIN [Concomitant]
     Active Substance: NYSTATIN
     Indication: MUCOSAL INFLAMMATION
     Dosage: UNK
     Route: 065
     Dates: start: 20190819
  63. MYCOSTATIN [Concomitant]
     Active Substance: NYSTATIN
     Dosage: UNK
     Route: 065
     Dates: start: 20190615, end: 20190819
  64. FENAKUT [Concomitant]
     Dosage: ONGOING = NOT CHECKED
     Route: 065
     Dates: start: 20180810, end: 20180914
  65. ROZEX [METRONIDAZOLE] [Concomitant]
     Indication: DERMATITIS
     Dosage: UNK
     Route: 065
     Dates: start: 20180921, end: 20181005

REACTIONS (15)
  - Nausea [Recovered/Resolved]
  - Constipation [Recovered/Resolved]
  - Conjunctivitis [Recovered/Resolved]
  - Dermatitis [Recovered/Resolved]
  - Infection [Not Recovered/Not Resolved]
  - Epistaxis [Recovered/Resolved]
  - Hypertension [Unknown]
  - Nausea [Not Recovered/Not Resolved]
  - Arthralgia [Recovering/Resolving]
  - Dyspnoea [Not Recovered/Not Resolved]
  - Mucosal inflammation [Recovering/Resolving]
  - Diarrhoea [Recovered/Resolved]
  - Gastroenteritis radiation [Recovered/Resolved]
  - Abdominal pain upper [Not Recovered/Not Resolved]
  - Blepharitis [Recovered/Resolved]

NARRATIVE: CASE EVENT DATE: 20180810
